FAERS Safety Report 9914981 (Version 1)
Quarter: 2014Q1

REPORT INFORMATION
  Report Type: Spontaneous
  Country: US (occurrence: US)
  Receive Date: 20140220
  Receipt Date: 20140220
  Transmission Date: 20141002
  Serious: Yes (Other)
  Sender: FDA-Public Use
  Company Number: CHPA2014US002758

PATIENT
  Age: 67 Year
  Sex: Female

DRUGS (2)
  1. PREVACID 24HR 15MG [Suspect]
     Indication: DYSPEPSIA
     Dosage: 15 MG, QD
     Route: 048
     Dates: start: 20131201, end: 201402
  2. PREVACID 24HR 15MG [Suspect]
     Indication: OFF LABEL USE

REACTIONS (4)
  - Food poisoning [Recovered/Resolved]
  - Diarrhoea [Not Recovered/Not Resolved]
  - Incorrect drug administration duration [Unknown]
  - Therapeutic response unexpected [Unknown]
